FAERS Safety Report 8407663-4 (Version None)
Quarter: 2012Q2

REPORT INFORMATION
  Report Type: 
  Country: None (occurrence: None)
  Receive Date: 20120604
  Receipt Date: 20120525
  Transmission Date: 20120825
  Serious: Yes (Other)
  Sender: FDA-Public Use
  Company Number: ES-FOUGERA-2012FO001124

PATIENT
  Age: 45 Year
  Sex: Male
  Weight: 105.78 kg

DRUGS (2)
  1. DICLOFENAC SODIUM [Suspect]
     Indication: PROCEDURAL PAIN
     Dates: start: 20120413
  2. SIMVASTATIN [Concomitant]
     Indication: PRODUCT USED FOR UNKNOWN INDICATION
     Dates: start: 20120210, end: 20120504

REACTIONS (2)
  - JAUNDICE CHOLESTATIC [None]
  - OFF LABEL USE [None]
